FAERS Safety Report 20434359 (Version 7)
Quarter: 2025Q2

REPORT INFORMATION
  Report Type: Report from Study
  Country: US (occurrence: US)
  Receive Date: 20220206
  Receipt Date: 20250630
  Transmission Date: 20250716
  Serious: Yes (Hospitalization, Other)
  Sender: NOVARTIS
  Company Number: US-NOVARTISPH-NVSC2022US023478

PATIENT
  Age: 35 Year
  Sex: Male
  Weight: 62.7 kg

DRUGS (9)
  1. COSENTYX [Suspect]
     Active Substance: SECUKINUMAB
     Indication: Psoriasis
     Dosage: 300 MG, QMO
     Route: 058
     Dates: start: 20201208, end: 20211101
  2. CALCIPOTRIENE [Concomitant]
     Active Substance: CALCIPOTRIENE
     Indication: Psoriasis
     Dosage: UNK, QD
     Route: 065
  3. DOLUTEGRAVIR [Concomitant]
     Active Substance: DOLUTEGRAVIR
     Indication: Product used for unknown indication
     Route: 065
  4. FLUOCINOLONE [Concomitant]
     Active Substance: FLUOCINOLONE
     Indication: Product used for unknown indication
     Route: 065
  5. HYDROCORTISONE\MICONAZOLE [Concomitant]
     Active Substance: HYDROCORTISONE\MICONAZOLE
     Indication: Product used for unknown indication
     Route: 065
  6. TRIAMCINOLONE [Concomitant]
     Active Substance: TRIAMCINOLONE
     Indication: Product used for unknown indication
     Route: 065
  7. CLOBETASOL [Concomitant]
     Active Substance: CLOBETASOL
     Indication: Product used for unknown indication
     Route: 065
  8. CETIRIZINE [Concomitant]
     Active Substance: CETIRIZINE HYDROCHLORIDE
     Indication: Product used for unknown indication
     Route: 065
  9. MAGNESIUM SULFATE [Concomitant]
     Active Substance: MAGNESIUM SULFATE
     Indication: Product used for unknown indication
     Route: 065

REACTIONS (23)
  - Neurosyphilis [Recovered/Resolved]
  - Syphilis [Unknown]
  - Atypical mycobacterial pneumonia [Recovered/Resolved]
  - Gonorrhoea [Not Recovered/Not Resolved]
  - Acquired immunodeficiency syndrome [Unknown]
  - Urethritis chlamydial [Unknown]
  - Kaposi^s sarcoma [Unknown]
  - Nephrolithiasis [Unknown]
  - Oropharyngeal candidiasis [Unknown]
  - Urethritis [Unknown]
  - Oral hairy leukoplakia [Unknown]
  - Splenomegaly [Unknown]
  - Lymphadenopathy [Unknown]
  - Oral candidiasis [Unknown]
  - Chest pain [Recovered/Resolved]
  - Fatigue [Unknown]
  - Pyrexia [Unknown]
  - Chills [Unknown]
  - Productive cough [Unknown]
  - Mouth ulceration [Unknown]
  - CD4 lymphocytes abnormal [Unknown]
  - Seborrhoeic keratosis [Unknown]
  - Molluscum contagiosum [Unknown]

NARRATIVE: CASE EVENT DATE: 20211101
